FAERS Safety Report 6048436-X (Version None)
Quarter: 2009Q1

REPORT INFORMATION
  Report Type: 
  Country: None (occurrence: None)
  Receive Date: 20090123
  Receipt Date: 20090116
  Transmission Date: 20090719
  Serious: Yes (Hospitalization)
  Sender: FDA-Public Use
  Company Number: A0764621A

PATIENT
  Age: 57 Year
  Sex: Male
  Weight: 97.7 kg

DRUGS (1)
  1. AVANDIA [Suspect]
     Indication: DRUG USE FOR UNKNOWN INDICATION
     Route: 048
     Dates: start: 19970401, end: 20011211

REACTIONS (4)
  - CARDIAC FAILURE CONGESTIVE [None]
  - FRACTURE [None]
  - MACULAR OEDEMA [None]
  - MYOCARDIAL INFARCTION [None]
